FAERS Safety Report 7586755-6 (Version None)
Quarter: 2011Q2

REPORT INFORMATION
  Report Type: 
  Country: None (occurrence: None)
  Receive Date: 20110603
  Receipt Date: 20110211
  Transmission Date: 20111010
  Serious: Yes (Other)
  Sender: FDA-Public Use
  Company Number: 2011SP006678

PATIENT
  Age: 47 Year
  Sex: Male

DRUGS (2)
  1. VALOPRATE [Concomitant]
  2. SAPHRIS [Suspect]
     Indication: DRUG THERAPY
     Dosage: 5 MG;HS;PO
     Route: 048
     Dates: start: 20101026, end: 20101028

REACTIONS (4)
  - EXTRAPYRAMIDAL DISORDER [None]
  - INCORRECT ROUTE OF DRUG ADMINISTRATION [None]
  - UNDERDOSE [None]
  - DYSKINESIA [None]
